FAERS Safety Report 5472072-7 (Version None)
Quarter: 2007Q3

REPORT INFORMATION
  Report Type: 
  Country: None (occurrence: None)
  Receive Date: 20070928
  Receipt Date: 20070918
  Transmission Date: 20080115
  Serious: Yes (Other)
  Sender: FDA-Public Use
  Company Number: BR-PFIZER INC-2007079718

PATIENT
  Sex: Female

DRUGS (3)
  1. CHAMPIX [Suspect]
     Indication: SMOKING CESSATION THERAPY
     Route: 048
  2. LEXAPRO [Concomitant]
     Route: 048
  3. BUSPAR [Concomitant]
     Route: 048

REACTIONS (1)
  - SWOLLEN TONGUE [None]
